FAERS Safety Report 12927596 (Version 1)
Quarter: 2016Q4

REPORT INFORMATION
  Report Type: Spontaneous
  Country: US (occurrence: US)
  Receive Date: 20161109
  Receipt Date: 20161109
  Transmission Date: 20170207
  Serious: No
  Sender: FDA-Public Use
  Company Number: None

PATIENT
  Age: 62 Year
  Sex: Male

DRUGS (25)
  1. ELIQUIS [Concomitant]
     Active Substance: APIXABAN
  2. NOVOLOG [Concomitant]
     Active Substance: INSULIN ASPART
  3. TAMSULOSIN [Concomitant]
     Active Substance: TAMSULOSIN
  4. SERTRALINE [Concomitant]
     Active Substance: SERTRALINE HYDROCHLORIDE
  5. GABAPENTIN. [Concomitant]
     Active Substance: GABAPENTIN
  6. BUTRANS [Suspect]
     Active Substance: BUPRENORPHINE
     Indication: PAIN
     Dosage: ?          OTHER FREQUENCY:WEEKLY;?
     Route: 062
  7. VITAMIN D [Concomitant]
     Active Substance: CHOLECALCIFEROL
  8. ASA [Concomitant]
     Active Substance: ASPIRIN
  9. ADVAIR HFA [Concomitant]
     Active Substance: FLUTICASONE PROPIONATE\SALMETEROL XINAFOATE
  10. SPIRIVA [Concomitant]
     Active Substance: TIOTROPIUM BROMIDE MONOHYDRATE
  11. PROAIR HFA [Concomitant]
     Active Substance: ALBUTEROL SULFATE
  12. LOSARTAN. [Concomitant]
     Active Substance: LOSARTAN
  13. OMEPRAZOLE. [Concomitant]
     Active Substance: OMEPRAZOLE
  14. FINASTERIDE. [Concomitant]
     Active Substance: FINASTERIDE
  15. ATORVASTATIN [Concomitant]
     Active Substance: ATORVASTATIN
  16. CARVEDILOL. [Concomitant]
     Active Substance: CARVEDILOL
  17. SPIRONOLACTONE. [Concomitant]
     Active Substance: SPIRONOLACTONE
  18. LISINOPRIL. [Concomitant]
     Active Substance: LISINOPRIL
  19. FUROSEMIDE. [Concomitant]
     Active Substance: FUROSEMIDE
  20. QUETIAPINE. [Concomitant]
     Active Substance: QUETIAPINE
  21. LANTUS SOLOSTAR [Concomitant]
     Active Substance: INSULIN GLARGINE
  22. CYCLOBENZAPRINE [Concomitant]
     Active Substance: CYCLOBENZAPRINE
  23. VITAMIN C [Concomitant]
     Active Substance: ASCORBIC ACID
  24. FERROUS SULF [Concomitant]
  25. ISOSORBIDE. [Concomitant]
     Active Substance: ISOSORBIDE

REACTIONS (2)
  - Application site burn [None]
  - Chemical injury [None]

NARRATIVE: CASE EVENT DATE: 20161108
